FAERS Safety Report 9389673 (Version 2)
Quarter: 2013Q3

REPORT INFORMATION
  Report Type: Spontaneous
  Country: US (occurrence: US)
  Receive Date: 20130708
  Receipt Date: 20130807
  Transmission Date: 20140515
  Serious: No
  Sender: FDA-Public Use
  Company Number: US-AMGEN-USASP2013041315

PATIENT
  Age: 34 Year
  Sex: Female
  Weight: 85.5 kg

DRUGS (1)
  1. ENBREL [Suspect]
     Indication: ANKYLOSING SPONDYLITIS
     Dosage: 50 MG, QWK
     Route: 058
     Dates: start: 201302

REACTIONS (2)
  - Myalgia [Recovering/Resolving]
  - Injection site pain [Not Recovered/Not Resolved]
